FAERS Safety Report 6850488-1 (Version None)
Quarter: 2010Q3

REPORT INFORMATION
  Report Type: 
  Country: None (occurrence: None)
  Receive Date: 20100716
  Receipt Date: 20071124
  Transmission Date: 20110219
  Serious: No
  Sender: FDA-Public Use
  Company Number: US-PFIZER INC-2007087470

PATIENT
  Sex: Female
  Weight: 113.6 kg

DRUGS (6)
  1. CHANTIX [Suspect]
     Indication: SMOKING CESSATION THERAPY
     Dates: start: 20071003
  2. TENORMIN [Concomitant]
     Indication: WOLFF-PARKINSON-WHITE SYNDROME
  3. NIFEDIPINE [Concomitant]
     Indication: BLOOD PRESSURE ABNORMAL
  4. MOBIC [Concomitant]
  5. ELAVIL [Concomitant]
     Indication: SLEEP DISORDER
  6. VICODIN [Concomitant]

REACTIONS (4)
  - CYSTITIS [None]
  - MIDDLE INSOMNIA [None]
  - NOCTURIA [None]
  - URINE ABNORMALITY [None]
